FAERS Safety Report 5501143-1 (Version None)
Quarter: 2007Q4

REPORT INFORMATION
  Report Type: 
  Country: None (occurrence: None)
  Receive Date: 20071029
  Receipt Date: 20071018
  Transmission Date: 20080405
  Serious: Yes (Death, Other)
  Sender: FDA-Public Use
  Company Number: US-PFIZER INC-2007084847

PATIENT
  Sex: Male

DRUGS (2)
  1. VIAGRA [Suspect]
  2. ANTIHYPERTENSIVES [Concomitant]

REACTIONS (3)
  - ANEURYSM [None]
  - DEATH [None]
  - MYOCARDIAL INFARCTION [None]
